FAERS Safety Report 24916951 (Version 1)
Quarter: 2025Q1

REPORT INFORMATION
  Report Type: Spontaneous
  Country: US (occurrence: US)
  Receive Date: 20250203
  Receipt Date: 20250203
  Transmission Date: 20250408
  Serious: No
  Sender: MYLAN
  Company Number: US-MYLANLABS-2025M1008077

PATIENT
  Sex: Male

DRUGS (1)
  1. INSPRA [Suspect]
     Active Substance: EPLERENONE
     Indication: Product used for unknown indication
     Dosage: 1.5 DOSAGE FORM, QD (1.5 TABLETS (37.5 MG TOTAL) BY MOUTH 1 TIME EACH DAY)
     Route: 048

REACTIONS (1)
  - Wrong technique in product usage process [Unknown]
